FAERS Safety Report 12463975 (Version 1)
Quarter: 2016Q2

REPORT INFORMATION
  Report Type: Report from Study
  Country: US (occurrence: US)
  Receive Date: 20160614
  Receipt Date: 20160614
  Transmission Date: 20160815
  Serious: Yes (Other)
  Sender: FDA-Public Use
  Company Number: US-009507513-1606USA004973

PATIENT
  Sex: Male

DRUGS (3)
  1. RAMUCIRUMAB [Suspect]
     Active Substance: RAMUCIRUMAB
  2. TAXOL [Suspect]
     Active Substance: PACLITAXEL
  3. KEYTRUDA [Suspect]
     Active Substance: PEMBROLIZUMAB
     Route: 042

REACTIONS (4)
  - Neuropathy peripheral [Unknown]
  - Drug dose omission [Unknown]
  - Fatigue [Unknown]
  - Cytopenia [Unknown]
